FAERS Safety Report 13032333 (Version 1)
Quarter: 2016Q4

REPORT INFORMATION
  Report Type: Spontaneous
  Country: SE (occurrence: SE)
  Receive Date: 20161215
  Receipt Date: 20161215
  Transmission Date: 20170207
  Serious: Yes (Hospitalization)
  Sender: FDA-Public Use
  Company Number: SE-SA-2016SA223602

PATIENT
  Age: 53 Year
  Sex: Female

DRUGS (3)
  1. TAXOTERE [Suspect]
     Active Substance: DOCETAXEL
     Indication: BREAST CANCER
     Dosage: ^2 KURER^
     Route: 065
     Dates: start: 20160602, end: 20160602
  2. TAXOTERE [Interacting]
     Active Substance: DOCETAXEL
     Indication: BREAST CANCER
     Dosage: ^2 KURER^
     Route: 065
     Dates: start: 20160623, end: 20160623
  3. ATORVASTATIN [Interacting]
     Active Substance: ATORVASTATIN
     Indication: HYPERLIPIDAEMIA
     Route: 048
     Dates: end: 20160722

REACTIONS (2)
  - Drug interaction [Recovered/Resolved with Sequelae]
  - Myositis [Recovered/Resolved with Sequelae]

NARRATIVE: CASE EVENT DATE: 20160726
